FAERS Safety Report 22070241 (Version 1)
Quarter: 2023Q1

REPORT INFORMATION
  Report Type: Spontaneous
  Country: US (occurrence: US)
  Receive Date: 20230307
  Receipt Date: 20230307
  Transmission Date: 20230417
  Serious: No
  Sender: FDA-Public Use
  Company Number: US-SANOFI-01517022

PATIENT
  Age: 67 Year
  Sex: Female

DRUGS (1)
  1. TOUJEO [Suspect]
     Active Substance: INSULIN GLARGINE
     Indication: Type 2 diabetes mellitus
     Dosage: 74 UNITS IN THE MORNING AND AT NIGHT SHE IS ON A SLIDING SCALE. AT NIGHT SHE TAKES EITHER 28,34 OR 3

REACTIONS (1)
  - Inappropriate schedule of product administration [Unknown]
